FAERS Safety Report 21501015 (Version 3)
Quarter: 2025Q2

REPORT INFORMATION
  Report Type: Spontaneous
  Country: US (occurrence: US)
  Receive Date: 20221025
  Receipt Date: 20250619
  Transmission Date: 20250716
  Serious: Yes (Life-Threatening, Hospitalization, Other)
  Sender: AUROBINDO
  Company Number: US-MLMSERVICE-20221010-3845040-1

PATIENT
  Age: 57 Year
  Sex: Female

DRUGS (3)
  1. AZITHROMYCIN [Suspect]
     Active Substance: AZITHROMYCIN
     Indication: COVID-19 pneumonia
     Route: 065
  2. DEXAMETHASONE [Suspect]
     Active Substance: DEXAMETHASONE
     Indication: COVID-19 pneumonia
     Route: 065
  3. BAMLANIVIMAB\ETESEVIMAB [Concomitant]
     Active Substance: BAMLANIVIMAB\ETESEVIMAB
     Indication: COVID-19 pneumonia
     Route: 065

REACTIONS (2)
  - Off label use [Recovering/Resolving]
  - Bronchopulmonary aspergillosis [Recovering/Resolving]
